FAERS Safety Report 11158214 (Version 1)
Quarter: 2015Q2

REPORT INFORMATION
  Report Type: Spontaneous
  Country: DE (occurrence: DE)
  Receive Date: 20150603
  Receipt Date: 20150603
  Transmission Date: 20150821
  Serious: Yes (Death, Congenital Anomaly)
  Sender: FDA-Public Use
  Company Number: DE-TEVA-564460GER

PATIENT
  Age: 1 Day
  Sex: Female

DRUGS (6)
  1. MAXIM [Concomitant]
     Active Substance: DIENOGEST\ETHINYL ESTRADIOL
     Indication: ORAL CONTRACEPTION
     Dosage: 1 DOSAGE FORMS DAILY; 1 DF CONTAINS 0.03 MG ETHINYLESTRADIOL AND 2 MG DIENOGEST
     Route: 064
     Dates: start: 20140417, end: 20140518
  2. FOLIO FORTE [Concomitant]
     Active Substance: FOLIC ACID\VITAMINS
     Indication: PROPHYLAXIS OF NEURAL TUBE DEFECT
     Dosage: .8 MILLIGRAM DAILY;
     Route: 064
     Dates: start: 20140605, end: 20141017
  3. IMAP [Suspect]
     Active Substance: FLUSPIRILENE
     Indication: DEPRESSION
     Route: 064
     Dates: start: 20140417, end: 20141017
  4. XANAFLU [Suspect]
     Active Substance: INFLUENZA VIRUS VACCINE
     Indication: IMMUNISATION
     Route: 064
     Dates: start: 20141008, end: 20141008
  5. AMITRIPTYLIN [Suspect]
     Active Substance: AMITRIPTYLINE
     Indication: DEPRESSION
     Dosage: 75 MILLIGRAM DAILY;
     Route: 064
     Dates: start: 20140417, end: 20141017
  6. FLUOXETINE [Suspect]
     Active Substance: FLUOXETINE\FLUOXETINE HYDROCHLORIDE
     Indication: ANXIETY DISORDER
     Dosage: 20 MILLIGRAM DAILY;
     Route: 064
     Dates: start: 20140417, end: 20141017

REACTIONS (4)
  - Foetal exposure during pregnancy [Unknown]
  - Foetal death [Fatal]
  - Talipes [Not Recovered/Not Resolved]
  - Polydactyly [Not Recovered/Not Resolved]
